FAERS Safety Report 19369486 (Version 1)
Quarter: 2021Q2

REPORT INFORMATION
  Report Type: Spontaneous
  Country: US (occurrence: US)
  Receive Date: 20210602
  Receipt Date: 20210602
  Transmission Date: 20210717
  Serious: No
  Sender: FDA-Public Use
  Company Number: US-ROCHE-2721213

PATIENT
  Age: 54 Year
  Sex: Female

DRUGS (2)
  1. RITUXAN [Suspect]
     Active Substance: RITUXIMAB
     Indication: PRIMARY PROGRESSIVE MULTIPLE SCLEROSIS
     Dosage: ONGOING: NO
     Route: 065
     Dates: start: 2014, end: 2017
  2. OCREVUS [Suspect]
     Active Substance: OCRELIZUMAB
     Indication: PRIMARY PROGRESSIVE MULTIPLE SCLEROSIS
     Dosage: ONGOING: NO
     Route: 065
     Dates: start: 2018, end: 202001

REACTIONS (5)
  - Intentional product use issue [Unknown]
  - Vaginal ulceration [Unknown]
  - Vaginal discharge [Unknown]
  - Localised oedema [Unknown]
  - Off label use [Unknown]

NARRATIVE: CASE EVENT DATE: 202007
